FAERS Safety Report 23841901 (Version 1)
Quarter: 2024Q2

REPORT INFORMATION
  Report Type: Spontaneous
  Country: US (occurrence: US)
  Receive Date: 20240510
  Receipt Date: 20240510
  Transmission Date: 20240716
  Serious: Yes (Other)
  Sender: FDA-Public Use
  Company Number: US-BRISTOL-MYERS SQUIBB COMPANY-2024-070924

PATIENT
  Sex: Female

DRUGS (1)
  1. ZEPOSIA [Suspect]
     Active Substance: OZANIMOD HYDROCHLORIDE
     Indication: Relapsing-remitting multiple sclerosis
     Route: 048
     Dates: start: 202402, end: 20240330

REACTIONS (2)
  - Atrial tachycardia [Not Recovered/Not Resolved]
  - Ectopic atrial rhythm [Not Recovered/Not Resolved]

NARRATIVE: CASE EVENT DATE: 20240101
